FAERS Safety Report 12414524 (Version 1)
Quarter: 2016Q2

REPORT INFORMATION
  Report Type: Spontaneous
  Country: IT (occurrence: IT)
  Receive Date: 20160528
  Receipt Date: 20160528
  Transmission Date: 20160815
  Serious: Yes (Other)
  Sender: FDA-Public Use
  Company Number: IT-ACCORD-040817

PATIENT
  Age: 61 Year
  Sex: Male

DRUGS (6)
  1. MIRTAZAPINE. [Suspect]
     Active Substance: MIRTAZAPINE
     Indication: DEPRESSION
  2. QUETIAPINE. [Suspect]
     Active Substance: QUETIAPINE
     Indication: DEPRESSION
  3. VALPROIC ACID. [Suspect]
     Active Substance: VALPROIC ACID
     Indication: DEPRESSION
  4. ESCITALOPRAM [Suspect]
     Active Substance: ESCITALOPRAM OXALATE
     Indication: DEPRESSION
  5. VENLAFAXINE/VENLAFAXINE HYDROCHLORIDE [Suspect]
     Active Substance: VENLAFAXINE HYDROCHLORIDE
     Indication: DEPRESSION
  6. SERTRALINE [Suspect]
     Active Substance: SERTRALINE HYDROCHLORIDE
     Indication: DEPRESSION

REACTIONS (4)
  - Tremor [Recovered/Resolved]
  - Dysgraphia [Recovered/Resolved]
  - Drug ineffective [Unknown]
  - Dyskinesia [Recovered/Resolved]
